FAERS Safety Report 6396031-5 (Version None)
Quarter: 2009Q4

REPORT INFORMATION
  Report Type: 
  Country: None (occurrence: None)
  Receive Date: 20091009
  Receipt Date: 20090929
  Transmission Date: 20100525
  Serious: Yes (Death)
  Sender: FDA-Public Use
  Company Number: FR-ELI_LILLY_AND_COMPANY-FR200909007053

PATIENT
  Age: 56 Year
  Sex: Male

DRUGS (1)
  1. CYMBALTA [Suspect]
     Indication: CANCER PAIN
     Dosage: 120 MG, DAILY (1/D)
     Route: 048
     Dates: start: 20090701

REACTIONS (2)
  - MALIGNANT NEOPLASM PROGRESSION [None]
  - OFF LABEL USE [None]
